FAERS Safety Report 4706371-0 (Version None)
Quarter: 2005Q3

REPORT INFORMATION
  Report Type: 
  Country: None (occurrence: None)
  Receive Date: 20050705
  Receipt Date: 20050622
  Transmission Date: 20060218
  Serious: Yes (Hospitalization)
  Sender: FDA-Public Use
  Company Number: CO-BRISTOL-MYERS SQUIBB COMPANY-13015805

PATIENT
  Age: 5 Month
  Sex: Male

DRUGS (1)
  1. CEFEPIME HCL [Suspect]
     Indication: URINARY TRACT INFECTION
     Route: 042
     Dates: start: 20050422, end: 20050503

REACTIONS (3)
  - HEPATOMEGALY [None]
  - JAUNDICE [None]
  - LIVER FUNCTION TEST ABNORMAL [None]
